FAERS Safety Report 6810158-2 (Version None)
Quarter: 2010Q2

REPORT INFORMATION
  Report Type: 
  Country: None (occurrence: None)
  Receive Date: 20100630
  Receipt Date: 20100623
  Transmission Date: 20101027
  Serious: Yes (Other)
  Sender: FDA-Public Use
  Company Number: JP-WYE-H15264610

PATIENT
  Sex: Male
  Weight: 61 kg

DRUGS (15)
  1. ZOSYN [Suspect]
     Indication: BIOPSY PROSTATE
     Dosage: 4.5 G EVERY
     Route: 041
     Dates: start: 20100520, end: 20100520
  2. ZOSYN [Suspect]
     Indication: INFECTION PROPHYLAXIS
  3. GASTER [Concomitant]
     Indication: GASTRIC ULCER
     Route: 048
  4. CERNILTON N [Concomitant]
     Indication: BENIGN PROSTATIC HYPERPLASIA
     Route: 048
     Dates: start: 20100510
  5. NORVASC [Concomitant]
     Indication: HYPERTENSION
     Route: 048
  6. BEZATOL - SLOW RELEASE [Concomitant]
     Indication: HYPERLIPIDAEMIA
     Route: 048
  7. PROPOFOL [Suspect]
     Indication: DRUG USE FOR UNKNOWN INDICATION
     Route: 042
     Dates: start: 20100520, end: 20100520
  8. VOGLIBOSE [Concomitant]
     Indication: TYPE 2 DIABETES MELLITUS
     Route: 048
  9. MAGNESIUM OXIDE [Concomitant]
     Indication: CONSTIPATION
     Route: 048
  10. ATROPINE SULFATE [Suspect]
     Indication: DRUG USE FOR UNKNOWN INDICATION
     Route: 042
     Dates: start: 20100520, end: 20100520
  11. DORMICUM ^ROCHE^ [Suspect]
     Indication: DRUG USE FOR UNKNOWN INDICATION
     Route: 042
     Dates: start: 20100520, end: 20100520
  12. FENTANYL CITRATE [Suspect]
     Indication: DRUG USE FOR UNKNOWN INDICATION
     Dosage: 50 MG EVERY
     Route: 042
     Dates: start: 20100520, end: 20100520
  13. FENTANYL CITRATE [Suspect]
     Dosage: 50 MG EVERY
     Route: 042
     Dates: start: 20100520, end: 20100520
  14. CYANOCOBALAMIN [Concomitant]
     Indication: NEUROPATHY PERIPHERAL
     Route: 048
  15. TANATRIL [Concomitant]
     Indication: HYPERTENSION
     Route: 048

REACTIONS (4)
  - ANAPHYLACTIC SHOCK [None]
  - BLOOD PRESSURE DECREASED [None]
  - OXYGEN SATURATION DECREASED [None]
  - RASH ERYTHEMATOUS [None]
